FAERS Safety Report 4303796-2 (Version None)
Quarter: 2004Q1

REPORT INFORMATION
  Report Type: 
  Country: None (occurrence: None)
  Receive Date: 20040224
  Receipt Date: 20040224
  Transmission Date: 20041129
  Serious: Yes (Hospitalization)
  Sender: FDA-Public Use
  Company Number: None

PATIENT
  Age: 73 Year
  Sex: Male

DRUGS (1)
  1. ASPIRIN [Suspect]
     Indication: ANTICOAGULANT THERAPY
     Dosage: 325 MG QD ORAL
     Route: 048
     Dates: start: 20030903, end: 20031019

REACTIONS (4)
  - ABDOMINAL PAIN UPPER [None]
  - DUODENAL ULCER [None]
  - HAEMATEMESIS [None]
  - NAUSEA [None]
